FAERS Safety Report 9099913 (Version 1)
Quarter: 2013Q1

REPORT INFORMATION
  Report Type: Spontaneous
  Country: AT (occurrence: AT)
  Receive Date: 20130214
  Receipt Date: 20130214
  Transmission Date: 20140127
  Serious: Yes (Other)
  Sender: FDA-Public Use
  Company Number: AT-PFIZER INC-2013054109

PATIENT
  Age: 56 Year
  Sex: Female

DRUGS (10)
  1. LYRICA [Suspect]
     Dosage: 450 MG, UNK
     Dates: start: 201212, end: 20130108
  2. LYRICA [Suspect]
     Dosage: 600 MG, UNK
     Dates: start: 20130109
  3. WELLBUTRIN - SLOW RELEASE [Suspect]
     Dosage: 150 MG, UNK
     Dates: start: 20130109, end: 20130118
  4. NOMEXOR [Suspect]
     Dosage: 5 MG, UNK
     Dates: start: 201212
  5. MAGNOSOLV [Concomitant]
     Dosage: 1 DF, UNK
     Dates: start: 201212
  6. PROGYNOVA [Concomitant]
     Dosage: 1 DF, UNK
     Dates: start: 201212
  7. MENCORD PLUS [Concomitant]
     Dosage: 1 DF, UNK
     Dates: start: 201212
  8. OLEOVIT-D3 [Concomitant]
     Dosage: 2 GTT, UNK
     Dates: start: 201212
  9. PANTOPRAZOLE [Concomitant]
     Dosage: 40 MG, UNK
     Dates: start: 201212
  10. ANTIFLAT [Concomitant]
     Dosage: 8 DF, UNK
     Dates: start: 20130114, end: 20130114

REACTIONS (8)
  - Dysgeusia [Recovered/Resolved]
  - Dry mouth [Recovered/Resolved]
  - Weight increased [Recovered/Resolved]
  - Gamma-glutamyltransferase increased [Unknown]
  - Alanine aminotransferase increased [Unknown]
  - Aspartate aminotransferase increased [Unknown]
  - Blood cholesterol increased [Unknown]
  - Blood triglycerides [Unknown]
